FAERS Safety Report 23649302 (Version 1)
Quarter: 2024Q1

REPORT INFORMATION
  Report Type: Spontaneous
  Country: JP (occurrence: JP)
  Receive Date: 20240319
  Receipt Date: 20240319
  Transmission Date: 20240410
  Serious: Yes (Life-Threatening, Hospitalization, Other)
  Sender: FDA-Public Use
  Company Number: JP-PFIZER INC-PV202400036198

PATIENT
  Age: 54 Year
  Sex: Male

DRUGS (22)
  1. LEVOFLOXACIN [Suspect]
     Active Substance: LEVOFLOXACIN
     Indication: Evidence based treatment
     Dosage: UNK
  2. LEVOFLOXACIN [Suspect]
     Active Substance: LEVOFLOXACIN
     Indication: Disseminated tuberculosis
  3. LEVOFLOXACIN [Suspect]
     Active Substance: LEVOFLOXACIN
     Indication: Meningitis
  4. ISONIAZID [Suspect]
     Active Substance: ISONIAZID
     Indication: Disseminated tuberculosis
     Dosage: 250 MG, DAILY
  5. ISONIAZID [Suspect]
     Active Substance: ISONIAZID
     Indication: Evidence based treatment
  6. ISONIAZID [Suspect]
     Active Substance: ISONIAZID
     Indication: Meningitis
  7. PYRAZINAMIDE [Suspect]
     Active Substance: PYRAZINAMIDE
     Indication: Disseminated tuberculosis
     Dosage: 1 G, DAILY
  8. PYRAZINAMIDE [Suspect]
     Active Substance: PYRAZINAMIDE
     Indication: Evidence based treatment
  9. PYRAZINAMIDE [Suspect]
     Active Substance: PYRAZINAMIDE
     Indication: Meningitis
  10. RIFAMPIN [Concomitant]
     Active Substance: RIFAMPIN
     Indication: Disseminated tuberculosis
     Dosage: 450 MG, DAILY
  11. RIFAMPIN [Concomitant]
     Active Substance: RIFAMPIN
     Indication: Evidence based treatment
  12. RIFAMPIN [Concomitant]
     Active Substance: RIFAMPIN
     Indication: Meningitis
  13. ETHAMBUTOL [Concomitant]
     Active Substance: ETHAMBUTOL HYDROCHLORIDE
     Indication: Disseminated tuberculosis
     Dosage: 625 MG, DAILY
  14. ETHAMBUTOL [Concomitant]
     Active Substance: ETHAMBUTOL HYDROCHLORIDE
     Indication: Evidence based treatment
  15. ETHAMBUTOL [Concomitant]
     Active Substance: ETHAMBUTOL HYDROCHLORIDE
     Indication: Meningitis
  16. DEXAMETHASONE [Concomitant]
     Active Substance: DEXAMETHASONE
     Indication: Disseminated tuberculosis
     Dosage: UNK, HIGH-DOSE
  17. DEXAMETHASONE [Concomitant]
     Active Substance: DEXAMETHASONE
     Indication: Evidence based treatment
  18. DEXAMETHASONE [Concomitant]
     Active Substance: DEXAMETHASONE
     Indication: Meningitis
  19. RIFABUTIN [Concomitant]
     Active Substance: RIFABUTIN
     Indication: Disseminated tuberculosis
     Dosage: UNK
  20. RIFABUTIN [Concomitant]
     Active Substance: RIFABUTIN
     Indication: Evidence based treatment
     Dosage: 300 MG, DAILY
  21. RIFABUTIN [Concomitant]
     Active Substance: RIFABUTIN
     Indication: Meningitis
  22. CLOPIDOGREL [Concomitant]
     Active Substance: CLOPIDOGREL BISULFATE
     Indication: Antiplatelet therapy
     Dosage: UNK

REACTIONS (2)
  - Paradoxical drug reaction [Unknown]
  - Off label use [Unknown]
